FAERS Safety Report 9536854 (Version 1)
Quarter: 2013Q3

REPORT INFORMATION
  Report Type: Report from Study
  Country: US (occurrence: US)
  Receive Date: 20130919
  Receipt Date: 20130919
  Transmission Date: 20140515
  Serious: Yes (Other)
  Sender: FDA-Public Use
  Company Number: US-ROCHE-1276644

PATIENT
  Sex: Female

DRUGS (6)
  1. TRASTUZUMAB [Suspect]
     Indication: HER-2 POSITIVE BREAST CANCER
     Dosage: LOADING DOSE
     Route: 042
  2. TRASTUZUMAB [Suspect]
     Indication: BREAST CANCER METASTATIC
     Route: 042
  3. VINORELBINE [Suspect]
     Indication: HER-2 POSITIVE BREAST CANCER
     Route: 042
  4. VINORELBINE [Suspect]
     Indication: BREAST CANCER METASTATIC
  5. BLINDED EVEROLIMUS [Suspect]
     Indication: HER-2 POSITIVE BREAST CANCER
     Route: 048
  6. BLINDED EVEROLIMUS [Suspect]
     Indication: BREAST CANCER METASTATIC

REACTIONS (11)
  - Neutropenia [Unknown]
  - Leukopenia [Unknown]
  - Anaemia [Unknown]
  - Stomatitis [Unknown]
  - Fatigue [Unknown]
  - Febrile neutropenia [Unknown]
  - Diarrhoea [Unknown]
  - Pyrexia [Unknown]
  - Nausea [Unknown]
  - Hyperglycaemia [Unknown]
  - Thrombocytopenia [Unknown]
